FAERS Safety Report 7245300-5 (Version None)
Quarter: 2011Q1

REPORT INFORMATION
  Report Type: 
  Country: None (occurrence: None)
  Receive Date: 20110126
  Receipt Date: 20110118
  Transmission Date: 20110831
  Serious: Yes (Hospitalization, Other)
  Sender: FDA-Public Use
  Company Number: US-ROCHE-734034

PATIENT
  Sex: Female
  Weight: 64 kg

DRUGS (12)
  1. ACTEMRA [Suspect]
     Dosage: DOSE: 8 MG/KG
     Route: 042
     Dates: start: 20100816
  2. PREDNISONE [Concomitant]
     Route: 048
  3. THYROID TAB [Concomitant]
     Route: 048
  4. FOLVITE [Concomitant]
     Route: 048
  5. ACTEMRA [Suspect]
     Dosage: DOSE: 8MG/KG
     Route: 042
     Dates: start: 20100707
  6. CALCIUM CARBONATE [Concomitant]
     Route: 048
  7. MOBIC [Concomitant]
     Route: 048
  8. ACTEMRA [Suspect]
     Indication: RHEUMATOID ARTHRITIS
     Dosage: FORM: INFUSION; STRENGTH: 200MG/10ML (20MG/ML) SOLUTION; DOSE: 8 MG/KG
     Route: 042
     Dates: start: 20100609
  9. METHOTREXATE [Concomitant]
     Route: 048
  10. PHENERGAN [Concomitant]
     Dosage: AS NEEDED
     Route: 048
  11. ACTEMRA [Suspect]
     Dosage: DOSE: 8 MG/KG
     Route: 042
     Dates: start: 20100917
  12. CHOLECALCIFEROL [Concomitant]
     Dosage: DOSE: 1000 UNITS
     Route: 048

REACTIONS (3)
  - SEPTIC SHOCK [None]
  - DIVERTICULAR PERFORATION [None]
  - CHOLELITHIASIS [None]
